FAERS Safety Report 4479242-5 (Version None)
Quarter: 2004Q4

REPORT INFORMATION
  Report Type: 
  Country: None (occurrence: None)
  Receive Date: 20041019
  Receipt Date: 20041019
  Transmission Date: 20050328
  Serious: Yes (Life-Threatening)
  Sender: FDA-Public Use
  Company Number: None

PATIENT
  Age: 50 Year
  Sex: Male
  Weight: 92 kg

DRUGS (2)
  1. PROMETHAZINE [Suspect]
     Indication: NAUSEA
     Dosage: 25MG  X1  INTRAVENOUS
     Route: 042
     Dates: start: 20040511, end: 20040511
  2. PROMETHAZINE [Suspect]
     Indication: VOMITING
     Dosage: 25MG  X1  INTRAVENOUS
     Route: 042
     Dates: start: 20040511, end: 20040511

REACTIONS (5)
  - AGGRESSION [None]
  - AGITATION [None]
  - HALLUCINATION [None]
  - SOMNOLENCE [None]
  - VOMITING [None]
